FAERS Safety Report 13499678 (Version 1)
Quarter: 2017Q2

REPORT INFORMATION
  Report Type: Report from Study
  Country: CN (occurrence: CN)
  Receive Date: 20170501
  Receipt Date: 20170501
  Transmission Date: 20170830
  Serious: Yes (Hospitalization)
  Sender: FDA-Public Use
  Company Number: PHHY2017CN060588

PATIENT
  Age: 63 Year
  Sex: Female

DRUGS (2)
  1. BENAZEPRIL [Suspect]
     Active Substance: BENAZEPRIL HYDROCHLORIDE
     Indication: HYPERTENSION
     Route: 065
  2. INDAPAMIDE. [Concomitant]
     Active Substance: INDAPAMIDE
     Indication: HYPERTENSION
     Route: 065

REACTIONS (10)
  - Fatigue [Unknown]
  - Wolff-Parkinson-White syndrome [Unknown]
  - Seizure [Unknown]
  - Hypertension [Unknown]
  - Dizziness [Unknown]
  - Palpitations [Unknown]
  - Blood pressure fluctuation [Unknown]
  - Protein urine present [Unknown]
  - Nausea [Unknown]
  - Cerebral artery stenosis [Unknown]

NARRATIVE: CASE EVENT DATE: 201703
